FAERS Safety Report 10111340 (Version 1)
Quarter: 2014Q2

REPORT INFORMATION
  Report Type: Other
  Country: JP (occurrence: JP)
  Receive Date: 20140425
  Receipt Date: 20140425
  Transmission Date: 20141212
  Serious: Yes (Other)
  Sender: FDA-Public Use
  Company Number: JP-BRISTOL-MYERS SQUIBB COMPANY-20637336

PATIENT
  Sex: 0

DRUGS (1)
  1. VEPESID [Suspect]
     Indication: OVARIAN CANCER RECURRENT
     Route: 048

REACTIONS (1)
  - Subileus [Unknown]
